FAERS Safety Report 10217442 (Version 2)
Quarter: 2014Q2

REPORT INFORMATION
  Report Type: Spontaneous
  Country: US (occurrence: US)
  Receive Date: 20140604
  Receipt Date: 20140619
  Transmission Date: 20141212
  Serious: Yes (Hospitalization)
  Sender: FDA-Public Use
  Company Number: US-OTSUKA-US-2014-11167

PATIENT
  Sex: Female
  Weight: 83.9 kg

DRUGS (2)
  1. ABILIFY MAINTENA [Suspect]
     Indication: SCHIZOAFFECTIVE DISORDER
     Dosage: 400 MG MILLIGRAM(S), UNK
     Route: 030
     Dates: start: 201308
  2. TEGRETOL [Suspect]
     Indication: AFFECTIVE DISORDER
     Dosage: UNK
     Route: 065
     Dates: start: 201312, end: 201405

REACTIONS (7)
  - Psychiatric decompensation [Unknown]
  - Paranoia [Unknown]
  - Confusional state [Unknown]
  - Delusion [Unknown]
  - Delirium [Unknown]
  - Treatment noncompliance [Unknown]
  - Off label use [Unknown]
